FAERS Safety Report 23272939 (Version 2)
Quarter: 2024Q2

REPORT INFORMATION
  Report Type: Spontaneous
  Country: IT (occurrence: IT)
  Receive Date: 20231207
  Receipt Date: 20240627
  Transmission Date: 20240716
  Serious: No
  Sender: FDA-Public Use
  Company Number: IT-ROCHE-3443665

PATIENT
  Age: 77 Year
  Sex: Female

DRUGS (1)
  1. ALECTINIB [Suspect]
     Active Substance: ALECTINIB
     Indication: Product used for unknown indication
     Route: 065
     Dates: start: 202308

REACTIONS (1)
  - Haemoglobin decreased [Unknown]
